FAERS Safety Report 23652402 (Version 1)
Quarter: 2024Q1

REPORT INFORMATION
  Report Type: Report from Study
  Country: DE (occurrence: DE)
  Receive Date: 20240320
  Receipt Date: 20240320
  Transmission Date: 20240409
  Serious: Yes (Death, Hospitalization, Other)
  Sender: FDA-Public Use
  Company Number: None

PATIENT
  Age: 67 Year
  Sex: Male
  Weight: 92 kg

DRUGS (12)
  1. CARBOPLATIN [Suspect]
     Active Substance: CARBOPLATIN
     Indication: Non-small cell lung cancer
     Dosage: 465 MILLIGRAM
     Dates: start: 20190329, end: 20190329
  2. PEMETREXED [Suspect]
     Active Substance: PEMETREXED
     Indication: Non-small cell lung cancer
     Dosage: 1060 MG, UNKNOWN
     Dates: start: 20190329, end: 20190329
  3. PEMBROLIZUMAB [Suspect]
     Active Substance: PEMBROLIZUMAB
     Indication: Non-small cell lung cancer
     Dosage: 200 MILLIGRAM
     Dates: start: 20190329, end: 20190329
  4. METOPROLOL [Concomitant]
     Active Substance: METOPROLOL
     Dosage: 47 MG ORALLY TAKEN TWICE A DAY
     Dates: start: 20190321, end: 20190331
  5. INDAPAMIDE [Concomitant]
     Active Substance: INDAPAMIDE
     Dosage: 2 MG ORALLY TAKEN DAILY
     Dates: start: 20190321, end: 20190331
  6. DEXAMETHASONE [Concomitant]
     Active Substance: DEXAMETHASONE
     Dosage: 4 MG ORALLY TAKEN TWICE A DAY
     Dates: start: 20190329, end: 20190331
  7. ASPIRIN [Concomitant]
     Active Substance: ASPIRIN
     Dosage: 100 MG ONCE A DAY
     Dates: start: 20190321, end: 20190331
  8. VITAMIN B12 [Concomitant]
     Active Substance: CYANOCOBALAMIN
     Indication: Product used for unknown indication
     Dosage: 1000 UG, PRN
     Dates: start: 20190325, end: 20190325
  9. METOCLOPRAMIDE HYDROCHLORIDE [Concomitant]
     Active Substance: METOCLOPRAMIDE HYDROCHLORIDE
     Dosage: 10 MG ORALLY TAKEN AS NEEDED
     Dates: start: 20190329, end: 20190331
  10. RAMIPRIL [Concomitant]
     Active Substance: RAMIPRIL
     Dosage: 5 MG ORALLY TAKEN BID
     Dates: start: 20190321, end: 20190331
  11. CYANOCOBALAMIN [Concomitant]
     Active Substance: CYANOCOBALAMIN
     Dosage: 1000 MCG SC AS NEEDED
     Dates: start: 20190325, end: 20190325
  12. FOLIC ACID [Concomitant]
     Active Substance: FOLIC ACID
     Dosage: 1 MG DAILY
     Dates: start: 20190329, end: 20190331

REACTIONS (2)
  - Pulmonary embolism [Fatal]
  - Vomiting [Recovering/Resolving]

NARRATIVE: CASE EVENT DATE: 20190331
